FAERS Safety Report 6066603-6 (Version None)
Quarter: 2009Q1

REPORT INFORMATION
  Report Type: 
  Country: None (occurrence: None)
  Receive Date: 20090205
  Receipt Date: 20090128
  Transmission Date: 20090719
  Serious: Yes (Other)
  Sender: FDA-Public Use
  Company Number: B0556359A

PATIENT
  Age: 65 Year
  Sex: Female

DRUGS (12)
  1. CEFUROXIME [Suspect]
     Indication: PHARYNGITIS
     Dosage: 250MG TWICE PER DAY
     Route: 048
     Dates: start: 20081205, end: 20081208
  2. IBUPROFEN [Suspect]
     Indication: PHARYNGITIS
     Dosage: 400MG THREE TIMES PER DAY
     Route: 048
     Dates: start: 20081205, end: 20081208
  3. SOLUPRED [Suspect]
     Indication: COUGH
     Dosage: 40MG THREE TIMES PER DAY
     Route: 048
     Dates: start: 20081208, end: 20081210
  4. NEOCODION [Suspect]
     Dosage: 2UNIT PER DAY
     Route: 048
     Dates: start: 20081210, end: 20081217
  5. NETROMYCIN [Suspect]
     Dosage: 100MG PER DAY
     Route: 065
     Dates: start: 20081210, end: 20081218
  6. CELESTENE [Suspect]
     Dosage: 4MG PER DAY
     Route: 065
     Dates: start: 20081210, end: 20081218
  7. MUCOMYST [Suspect]
     Dosage: 1UNIT PER DAY
     Route: 055
     Dates: start: 20081210, end: 20081218
  8. PAXELADINE [Suspect]
     Indication: COUGH
     Dosage: 40MG THREE TIMES PER DAY
     Route: 048
     Dates: start: 20081208, end: 20081210
  9. IMOVANE [Suspect]
     Dosage: 1UNIT PER DAY
     Route: 048
     Dates: start: 20081210, end: 20081218
  10. BIOCALYPTOL [Concomitant]
     Indication: PHARYNGITIS
     Dates: start: 20081205
  11. INDAPAMIDE [Concomitant]
     Indication: HYPERTENSION
  12. ZELITREX [Concomitant]
     Indication: HERPES VIRUS INFECTION
     Route: 065

REACTIONS (8)
  - ACUTE GENERALISED EXANTHEMATOUS PUSTULOSIS [None]
  - HYPOALBUMINAEMIA [None]
  - HYPOKALAEMIA [None]
  - LEUKOCYTOSIS [None]
  - PURPURA [None]
  - PYREXIA [None]
  - RASH PUSTULAR [None]
  - SKIN LESION [None]
